FAERS Safety Report 22358413 (Version 2)
Quarter: 2023Q2

REPORT INFORMATION
  Report Type: Report from Study
  Country: ZA (occurrence: ZA)
  Receive Date: 20230524
  Receipt Date: 20230531
  Transmission Date: 20230721
  Serious: Yes (Other)
  Sender: FDA-Public Use
  Company Number: ZA-002147023-NVSC2022ZA037421

PATIENT
  Age: 42 Year
  Sex: Female

DRUGS (2)
  1. COSENTYX [Suspect]
     Active Substance: SECUKINUMAB
     Indication: Psoriatic arthropathy
     Dosage: 150 MG, QMO
     Route: 058
     Dates: start: 20200731
  2. COSENTYX [Suspect]
     Active Substance: SECUKINUMAB
     Dosage: 300 MG, QMO (DOSE INCREASED)
     Route: 058
     Dates: start: 20201008, end: 20230209

REACTIONS (9)
  - Spinal cord compression [Unknown]
  - Paraesthesia [Unknown]
  - Pain [Unknown]
  - Psoriasis [Unknown]
  - Rash macular [Unknown]
  - Cranial nerve disorder [Unknown]
  - Arthralgia [Unknown]
  - Neck pain [Unknown]
  - Drug ineffective [Unknown]
